FAERS Safety Report 6615276-X (Version None)
Quarter: 2010Q1

REPORT INFORMATION
  Report Type: 
  Country: None (occurrence: None)
  Receive Date: 20100305
  Receipt Date: 20100224
  Transmission Date: 20100710
  Serious: Yes (Other)
  Sender: FDA-Public Use
  Company Number: US-MYLANLABS-2010S1003267

PATIENT
  Age: 66 Year
  Sex: Male
  Weight: 95.26 kg

DRUGS (2)
  1. FENTANYL CITRATE [Suspect]
     Indication: BACK PAIN
     Dosage: Q72H
     Route: 062
     Dates: start: 20091201, end: 20100223
  2. FENTANYL CITRATE [Suspect]
     Indication: CHEST PAIN
     Dosage: Q72H
     Route: 062
     Dates: start: 20091201, end: 20100223

REACTIONS (7)
  - COLD SWEAT [None]
  - DRUG INEFFECTIVE [None]
  - DRUG WITHDRAWAL SYNDROME [None]
  - NAUSEA [None]
  - PAIN [None]
  - TREMOR [None]
  - VOMITING [None]
